FAERS Safety Report 24009002 (Version 3)
Quarter: 2024Q3

REPORT INFORMATION
  Report Type: Spontaneous
  Country: MX (occurrence: MX)
  Receive Date: 20240625
  Receipt Date: 20240801
  Transmission Date: 20241017
  Serious: Yes (Other)
  Sender: AUROBINDO
  Company Number: MX-MLMSERVICE-20240508-PI053717-00099-1

PATIENT
  Age: 75 Year
  Sex: Male

DRUGS (5)
  1. CIPROFLOXACIN [Suspect]
     Active Substance: CIPROFLOXACIN
     Indication: Cataract operation
     Dosage: UNK
     Route: 061
  2. PREDNISOLONE ACETATE [Suspect]
     Active Substance: PREDNISOLONE ACETATE
     Indication: Cataract operation
     Dosage: 1 %, EVERY TWO HOURS
     Route: 065
  3. SODIUM HYALURONATE [Suspect]
     Active Substance: HYALURONATE SODIUM
     Indication: Cataract operation
     Dosage: 4 MILLIGRAM/MILLILITRE, FOUR TIMES/DAY
     Route: 065
  4. BROMFENAC [Suspect]
     Active Substance: BROMFENAC
     Indication: Cataract operation
     Dosage: 0.09 %, TWO TIMES A DAY
     Route: 065
  5. TREHALOSE [Suspect]
     Active Substance: TREHALOSE
     Indication: Product used for unknown indication
     Dosage: 3 %
     Route: 065

REACTIONS (1)
  - Keratopathy [Recovered/Resolved]
